FAERS Safety Report 14016162 (Version 1)
Quarter: 2017Q3

REPORT INFORMATION
  Report Type: Spontaneous
  Country: US (occurrence: US)
  Receive Date: 20170927
  Receipt Date: 20170927
  Transmission Date: 20171128
  Serious: No
  Sender: FDA-Public Use
  Company Number: US-GALDERMA-US17003062

PATIENT
  Sex: Female

DRUGS (1)
  1. EPIDUO [Suspect]
     Active Substance: ADAPALENE\BENZOYL PEROXIDE
     Indication: PRODUCT USED FOR UNKNOWN INDICATION
     Dosage: 0.1% / 2.5%
     Route: 061
     Dates: start: 2017

REACTIONS (5)
  - Erythema [Unknown]
  - Urticaria [Unknown]
  - Swelling [Unknown]
  - Hypersensitivity [Unknown]
  - Pruritus [Unknown]

NARRATIVE: CASE EVENT DATE: 2017
